FAERS Safety Report 11081849 (Version 4)
Quarter: 2015Q4

REPORT INFORMATION
  Report Type: Spontaneous
  Country: US (occurrence: US)
  Receive Date: 20150501
  Receipt Date: 20151106
  Transmission Date: 20160304
  Serious: Yes (Hospitalization, Other)
  Sender: FDA-Public Use
  Company Number: US-009507513-1504USA023212

PATIENT
  Sex: Female

DRUGS (3)
  1. FOSAMAX [Suspect]
     Active Substance: ALENDRONATE SODIUM
     Indication: OSTEOPENIA
     Dosage: 70 MG, QW
     Route: 048
     Dates: start: 20070611, end: 200810
  2. ALENDRONATE SODIUM. [Suspect]
     Active Substance: ALENDRONATE SODIUM
     Indication: OSTEOPOROSIS
     Dosage: 70 MG, QW
     Route: 048
     Dates: start: 20081124, end: 20130211
  3. CALCIUM (UNSPECIFIED) [Concomitant]
     Active Substance: CALCIUM
     Dosage: 1200 MG, QD
     Dates: start: 2001

REACTIONS (19)
  - Iron deficiency anaemia [Unknown]
  - Hyperlipidaemia [Unknown]
  - Road traffic accident [Unknown]
  - Lumbar vertebral fracture [Unknown]
  - Insomnia [Unknown]
  - Foot operation [Unknown]
  - Hypovitaminosis [Unknown]
  - Bruxism [Unknown]
  - Osteoarthritis [Unknown]
  - Iliotibial band syndrome [Unknown]
  - Femur fracture [Recovered/Resolved]
  - Respiratory tract infection [Unknown]
  - Hyponatraemia [Unknown]
  - Stress [Unknown]
  - Anxiety [Unknown]
  - Weight decreased [Recovered/Resolved]
  - Fall [Unknown]
  - Respiratory disorder [Unknown]
  - Pollakiuria [Unknown]

NARRATIVE: CASE EVENT DATE: 20100419
